FAERS Safety Report 10558515 (Version 1)
Quarter: 2014Q4

REPORT INFORMATION
  Report Type: Spontaneous
  Country: US (occurrence: None)
  Receive Date: 20141029
  Receipt Date: 20141029
  Transmission Date: 20150529
  Serious: Yes (Other)
  Sender: FDA-Public Use
  Company Number: COR_00132_2014

PATIENT
  Age: 24 Month
  Sex: Male

DRUGS (3)
  1. THIOTEPA. [Suspect]
     Active Substance: THIOTEPA
     Indication: PRIMITIVE NEUROECTODERMAL TUMOUR
     Dosage: ON DAYS -5, -4, -3
  2. CARBOPLATIN. [Suspect]
     Active Substance: CARBOPLATIN
     Indication: PRIMITIVE NEUROECTODERMAL TUMOUR
     Dosage: ON DAYS -8, -7 AND -6
  3. ETOPOSIDE. [Suspect]
     Active Substance: ETOPOSIDE
     Indication: PRIMITIVE NEUROECTODERMAL TUMOUR
     Dosage: ON DAYS -5, -4, -3

REACTIONS (5)
  - Mucosal inflammation [None]
  - Urinary tract infection enterococcal [None]
  - Neutropenia [None]
  - Pyrexia [None]
  - Haematotoxicity [None]
